FAERS Safety Report 9372013 (Version 1)
Quarter: 2013Q2

REPORT INFORMATION
  Report Type: Spontaneous
  Country: BR (occurrence: BR)
  Receive Date: 20130627
  Receipt Date: 20130627
  Transmission Date: 20140414
  Serious: Yes (Hospitalization)
  Sender: FDA-Public Use
  Company Number: BR-US-EMD SERONO, INC.-7000505

PATIENT
  Age: 57 Year
  Sex: Female

DRUGS (12)
  1. REBIF [Suspect]
     Indication: RELAPSING-REMITTING MULTIPLE SCLEROSIS
     Dates: start: 20030601, end: 20040601
  2. REBIF [Suspect]
     Dates: start: 20040601, end: 20080701
  3. REBIF [Suspect]
     Dates: start: 20090101, end: 20091201
  4. REBIF [Suspect]
     Dates: start: 20100301
  5. TEGRETOL [Concomitant]
     Indication: PRODUCT USED FOR UNKNOWN INDICATION
  6. PONDERA [Concomitant]
     Indication: PRODUCT USED FOR UNKNOWN INDICATION
  7. CARBOLITHIUM [Concomitant]
     Indication: PRODUCT USED FOR UNKNOWN INDICATION
  8. LITHIUM [Concomitant]
     Indication: PRODUCT USED FOR UNKNOWN INDICATION
  9. IMIPRAMINE HYDROCHLORIDE [Concomitant]
     Indication: PRODUCT USED FOR UNKNOWN INDICATION
  10. RISPERIDONE [Concomitant]
     Indication: PRODUCT USED FOR UNKNOWN INDICATION
  11. CLONAZEPAM [Concomitant]
     Indication: PRODUCT USED FOR UNKNOWN INDICATION
  12. RIVOTRIL [Concomitant]
     Indication: PRODUCT USED FOR UNKNOWN INDICATION

REACTIONS (1)
  - Depression [Unknown]
